FAERS Safety Report 7717773-2 (Version None)
Quarter: 2011Q3

REPORT INFORMATION
  Report Type: 
  Country: None (occurrence: None)
  Receive Date: 20110824
  Receipt Date: 20110809
  Transmission Date: 20111222
  Serious: Yes (Death)
  Sender: FDA-Public Use
  Company Number: 2011-336

PATIENT
  Age: 90 Year
  Sex: Female

DRUGS (2)
  1. PRIALT [Suspect]
     Dosage: ONCE/HOUR, INTRATHECAL
     Route: 037
     Dates: end: 20110718
  2. MORPHINE SULFATE INJ [Suspect]
     Dosage: ONCE/HOUR, INTRATHECAL
     Route: 037
     Dates: end: 20110718

REACTIONS (1)
  - PNEUMONIA [None]
